FAERS Safety Report 8251798-6 (Version None)
Quarter: 2012Q1

REPORT INFORMATION
  Report Type: 
  Country: None (occurrence: None)
  Receive Date: 20120321
  Receipt Date: 20100310
  Transmission Date: 20120608
  Serious: Yes (Other)
  Sender: FDA-Public Use
  Company Number: PHEH2010US03047

PATIENT
  Age: 84 Year
  Sex: Male

DRUGS (5)
  1. NORVASC [Suspect]
  2. VALTURNA [Suspect]
     Dosage: 150/160MG
  3. TARKA [Suspect]
     Dosage: 360 MG, UNK
  4. PROCARDIA [Suspect]
  5. ATACAND [Suspect]
     Dosage: 32 MG, UNK

REACTIONS (4)
  - GOUT [None]
  - OEDEMA [None]
  - BLOOD PRESSURE INCREASED [None]
  - JOINT SWELLING [None]
